FAERS Safety Report 19797630 (Version 2)
Quarter: 2021Q3

REPORT INFORMATION
  Report Type: Spontaneous
  Country: FR (occurrence: FR)
  Receive Date: 20210907
  Receipt Date: 20210930
  Transmission Date: 20211014
  Serious: Yes (Hospitalization, Other)
  Sender: FDA-Public Use
  Company Number: FR-AMGEN-FRASP2021134946

PATIENT
  Sex: Female
  Weight: 2.3 kg

DRUGS (9)
  1. NEOSYNEPHRINE [Interacting]
     Active Substance: PHENYLEPHRINE HYDROCHLORIDE
     Dosage: UNK
     Route: 047
     Dates: start: 20210805, end: 20210805
  2. NEOSYNEPHRINE [Interacting]
     Active Substance: PHENYLEPHRINE HYDROCHLORIDE
     Dosage: UNK
     Route: 047
     Dates: start: 20210808, end: 20210808
  3. BEVACIZUMAB. [Suspect]
     Active Substance: BEVACIZUMAB
     Indication: RETINOPATHY OF PREMATURITY
     Dosage: UNK
     Route: 031
     Dates: start: 20210803, end: 20210803
  4. NEOSYNEPHRINE [Interacting]
     Active Substance: PHENYLEPHRINE HYDROCHLORIDE
     Dosage: UNK
     Route: 047
     Dates: start: 20210803, end: 20210803
  5. MYDRIATICUM [Suspect]
     Active Substance: TROPICAMIDE
     Dosage: UNK
     Route: 047
     Dates: start: 20210805, end: 20210805
  6. MYDRIATICUM [Suspect]
     Active Substance: TROPICAMIDE
     Dosage: UNK
     Route: 047
     Dates: start: 20210808, end: 20210808
  7. NEOSYNEPHRINE [Interacting]
     Active Substance: PHENYLEPHRINE HYDROCHLORIDE
     Indication: MYDRIASIS
     Dosage: UNK
     Route: 047
     Dates: start: 20210812, end: 20210812
  8. MYDRIATICUM [Suspect]
     Active Substance: TROPICAMIDE
     Indication: MYDRIASIS
     Dosage: UNK
     Route: 047
     Dates: start: 20210812, end: 20210812
  9. MYDRIATICUM [Suspect]
     Active Substance: TROPICAMIDE
     Dosage: UNK
     Route: 047
     Dates: start: 20210803, end: 20210803

REACTIONS (2)
  - Necrotising colitis [Recovered/Resolved]
  - Condition aggravated [Recovered/Resolved]

NARRATIVE: CASE EVENT DATE: 20210806
